FAERS Safety Report 24459488 (Version 1)
Quarter: 2024Q4

REPORT INFORMATION
  Report Type: Spontaneous
  Country: SE (occurrence: SE)
  Receive Date: 20241018
  Receipt Date: 20241018
  Transmission Date: 20250115
  Serious: No
  Sender: ROCHE
  Company Number: None

PATIENT
  Age: 59 Year
  Sex: Female
  Weight: 74.0 kg

DRUGS (2)
  1. MABTHERA [Suspect]
     Active Substance: RITUXIMAB
     Indication: Multiple sclerosis
     Dosage: SECOND DOSE
     Route: 065
     Dates: start: 20230704, end: 20230704
  2. MABTHERA [Suspect]
     Active Substance: RITUXIMAB
     Dosage: FIRST DOSE
     Route: 065
     Dates: start: 20230109, end: 20230109

REACTIONS (3)
  - Pyrexia [Recovered/Resolved]
  - Arthralgia [Recovered/Resolved]
  - Joint swelling [Recovered/Resolved]

NARRATIVE: CASE EVENT DATE: 20230116
